FAERS Safety Report 14142576 (Version 1)
Quarter: 2017Q4

REPORT INFORMATION
  Report Type: Spontaneous
  Country: JP (occurrence: JP)
  Receive Date: 20171030
  Receipt Date: 20171030
  Transmission Date: 20180321
  Serious: Yes (Other)
  Sender: FDA-Public Use
  Company Number: JP-MYLANLABS-2017M1067539

PATIENT
  Age: 75 Year
  Sex: Male

DRUGS (3)
  1. CISPLATIN. [Suspect]
     Active Substance: CISPLATIN
     Indication: SMALL INTESTINE CARCINOMA METASTATIC
     Dosage: 40 MG/BODY
     Route: 065
  2. GEMCITABINE [Suspect]
     Active Substance: GEMCITABINE\GEMCITABINE HYDROCHLORIDE
     Indication: SMALL INTESTINE CARCINOMA METASTATIC
     Dosage: 1600 MG/BODY
     Route: 065
  3. GIMERACIL;OTERACIL;TEGAFUR [Suspect]
     Active Substance: GIMERACIL\OTERACIL\TEGAFUR
     Indication: SMALL INTESTINE CARCINOMA METASTATIC
     Dosage: SYSTEMIC THERAPY
     Route: 065

REACTIONS (4)
  - Malaise [Unknown]
  - Leukopenia [Unknown]
  - Neuropathy peripheral [Unknown]
  - Interstitial lung disease [Unknown]
